FAERS Safety Report 7750178-7 (Version None)
Quarter: 2011Q3

REPORT INFORMATION
  Report Type: 
  Country: None (occurrence: None)
  Receive Date: 20110914
  Receipt Date: 20110914
  Transmission Date: 20111222
  Serious: Yes (Hospitalization)
  Sender: FDA-Public Use
  Company Number: None

PATIENT
  Age: 71 Year
  Sex: Male
  Weight: 110 kg

DRUGS (2)
  1. IOHEXOL [Suspect]
     Indication: CATHETERISATION CARDIAC
     Dosage: 380 ML
     Route: 040
     Dates: start: 20110829, end: 20110829
  2. CLOPIDOGREL [Concomitant]
     Indication: CORONARY ARTERY DISEASE
     Dosage: 75 MG
     Route: 048
     Dates: start: 20110830, end: 20110913

REACTIONS (5)
  - PRURITUS [None]
  - RENAL FAILURE ACUTE [None]
  - SKIN EXFOLIATION [None]
  - ERYTHEMA [None]
  - URTICARIA [None]
